FAERS Safety Report 12325816 (Version 26)
Quarter: 2019Q2

REPORT INFORMATION
  Report Type: Report from Study
  Country: JP (occurrence: JP)
  Receive Date: 20160503
  Receipt Date: 20190425
  Transmission Date: 20190711
  Serious: Yes (Life-Threatening, Hospitalization, Other)
  Sender: FDA-Public Use
  Company Number: JP-BRISTOL-MYERS SQUIBB COMPANY-BMS-2015-081758

PATIENT
  Age: 37 Year
  Sex: Male
  Weight: 57 kg

DRUGS (9)
  1. NIVOLUMAB [Suspect]
     Active Substance: NIVOLUMAB
     Indication: MALIGNANT MELANOMA
     Dosage: 2 MILLIGRAM/KILOGRAM, QD
     Route: 041
     Dates: start: 20150902
  2. NIVOLUMAB [Suspect]
     Active Substance: NIVOLUMAB
     Indication: PRODUCT USED FOR UNKNOWN INDICATION
     Dosage: 120 MILLIGRAM
     Route: 041
  3. NIVOLUMAB [Suspect]
     Active Substance: NIVOLUMAB
     Indication: PRODUCT USED FOR UNKNOWN INDICATION
     Dosage: 180 MILLIGRAM
     Route: 041
     Dates: start: 20161003
  4. YERVOY [Suspect]
     Active Substance: IPILIMUMAB
     Indication: MALIGNANT MELANOMA
     Dosage: 3 MG/KG, (2016/1/13,2/3,3/2)
     Route: 041
     Dates: start: 20160113
  5. REMICADE [Suspect]
     Active Substance: INFLIXIMAB
     Indication: COLITIS
     Dosage: 300 MILLIGRAM
     Route: 065
     Dates: start: 20160329, end: 20160413
  6. YERVOY [Suspect]
     Active Substance: IPILIMUMAB
     Indication: PRODUCT USED FOR UNKNOWN INDICATION
     Dosage: UNK
     Route: 041
     Dates: start: 20160321
  7. GASTER [Suspect]
     Active Substance: FAMOTIDINE
     Indication: PRODUCT USED FOR UNKNOWN INDICATION
     Dosage: UNK
     Route: 065
  8. DACARBAZINE. [Suspect]
     Active Substance: DACARBAZINE
     Indication: MALIGNANT MELANOMA
     Dosage: 1000 MILLIGRAM/SQ. METER, QD
     Route: 065
     Dates: start: 20160727, end: 20160727
  9. DACARBAZINE. [Suspect]
     Active Substance: DACARBAZINE
     Indication: PRODUCT USED FOR UNKNOWN INDICATION
     Dosage: 1657 MILLIGRAM, QD
     Route: 016
     Dates: start: 20160824, end: 20160824

REACTIONS (16)
  - Weight decreased [Unknown]
  - Cytomegalovirus enterocolitis [Not Recovered/Not Resolved]
  - Alanine aminotransferase increased [Recovered/Resolved]
  - Gamma-glutamyltransferase increased [Recovered/Resolved]
  - Pyrexia [Recovering/Resolving]
  - Platelet count decreased [Recovering/Resolving]
  - Liver function test increased [Unknown]
  - Decreased appetite [Unknown]
  - Skin exfoliation [Unknown]
  - Colitis [Recovered/Resolved]
  - Pruritus [Unknown]
  - Blood alkaline phosphatase increased [Recovered/Resolved]
  - Aspartate aminotransferase increased [Recovered/Resolved]
  - Cough [Unknown]
  - Dermatitis [Unknown]
  - Skin haemorrhage [Unknown]

NARRATIVE: CASE EVENT DATE: 2016
